FAERS Safety Report 6711270-9 (Version None)
Quarter: 2010Q2

REPORT INFORMATION
  Report Type: 
  Country: None (occurrence: None)
  Receive Date: 20100505
  Receipt Date: 20100426
  Transmission Date: 20101027
  Serious: Yes (Other)
  Sender: FDA-Public Use
  Company Number: TN-BRISTOL-MYERS SQUIBB COMPANY-15072655

PATIENT
  Age: 73 Year
  Sex: Female

DRUGS (2)
  1. GLUCOPHAGE [Suspect]
     Indication: TYPE 2 DIABETES MELLITUS
     Route: 048
     Dates: start: 19970101, end: 20010801
  2. AVLOCARDYL [Concomitant]
     Indication: ESSENTIAL HYPERTENSION
     Dosage: 1 DF =AVLOCARDYL 40 TABS
     Dates: start: 20010301

REACTIONS (1)
  - PHOTOSENSITIVITY REACTION [None]
